FAERS Safety Report 4903319-0 (Version None)
Quarter: 2006Q1

REPORT INFORMATION
  Report Type: 
  Country: None (occurrence: None)
  Receive Date: 20060206
  Receipt Date: 20060206
  Transmission Date: 20060701
  Serious: Yes (Life-Threatening, Hospitalization)
  Sender: FDA-Public Use
  Company Number: None

PATIENT
  Age: 60 Year
  Sex: Male
  Weight: 96.02 kg

DRUGS (8)
  1. PROPYLTHIOURACIL [Suspect]
     Indication: HYPERTHYROIDISM
     Dosage: 100 MG PO TID
     Route: 048
     Dates: start: 20051031, end: 20051122
  2. RANITIDINE [Suspect]
     Indication: GASTROOESOPHAGEAL REFLUX DISEASE
     Dosage: 150 MG PO HS
     Route: 048
     Dates: start: 20051101, end: 20060101
  3. FLUOXETINE [Concomitant]
  4. PROPRANOLOL [Concomitant]
  5. APAP TAB [Concomitant]
  6. CLONAZEPAM [Concomitant]
  7. HYDROXIDE SUSP [Concomitant]
  8. PSYLLIUM POWDER [Concomitant]

REACTIONS (3)
  - AGRANULOCYTOSIS [None]
  - NEUTROPHIL COUNT DECREASED [None]
  - WHITE BLOOD CELL COUNT DECREASED [None]
